FAERS Safety Report 11057054 (Version 2)
Quarter: 2015Q2

REPORT INFORMATION
  Report Type: Spontaneous
  Country: US (occurrence: US)
  Receive Date: 20150422
  Receipt Date: 20150524
  Transmission Date: 20150821
  Serious: Yes (Life-Threatening)
  Sender: FDA-Public Use
  Company Number: US-JNJFOC-20150323060

PATIENT
  Age: 73 Year
  Sex: Female

DRUGS (1)
  1. INVOKANA [Suspect]
     Active Substance: CANAGLIFLOZIN
     Indication: DIABETES MELLITUS
     Route: 048
     Dates: start: 20140903, end: 20140909

REACTIONS (6)
  - Urinary tract infection [Recovered/Resolved]
  - Dehydration [Unknown]
  - Bladder disorder [Unknown]
  - Blood pressure decreased [Unknown]
  - Urosepsis [Recovered/Resolved]
  - Renal disorder [Unknown]

NARRATIVE: CASE EVENT DATE: 20140906
